FAERS Safety Report 6826832-8 (Version None)
Quarter: 2010Q3

REPORT INFORMATION
  Report Type: 
  Country: None (occurrence: None)
  Receive Date: 20100709
  Receipt Date: 20100705
  Transmission Date: 20110219
  Serious: Yes (Death, Other)
  Sender: FDA-Public Use
  Company Number: US-SANOFI-AVENTIS-2010SA039097

PATIENT

DRUGS (3)
  1. OXALIPLATIN [Suspect]
     Route: 041
  2. DOCETAXEL [Suspect]
     Route: 041
  3. CAPECITABINE [Suspect]
     Route: 048

REACTIONS (22)
  - ACUTE RESPIRATORY DISTRESS SYNDROME [None]
  - ANAEMIA [None]
  - CARDIAC DISORDER [None]
  - DECREASED APPETITE [None]
  - DEHYDRATION [None]
  - DIARRHOEA [None]
  - DYSPHAGIA [None]
  - FATIGUE [None]
  - HYPERGLYCAEMIA [None]
  - INFECTION [None]
  - LEUKOPENIA [None]
  - LUNG DISORDER [None]
  - MUCOSAL INFLAMMATION [None]
  - NAUSEA [None]
  - OESOPHAGITIS [None]
  - PAIN [None]
  - PYREXIA [None]
  - RESPIRATORY DISORDER [None]
  - SEPSIS [None]
  - SKIN TOXICITY [None]
  - THROMBOCYTOPENIA [None]
  - VOMITING [None]
